FAERS Safety Report 11101605 (Version 3)
Quarter: 2015Q3

REPORT INFORMATION
  Report Type: Spontaneous
  Country: US (occurrence: US)
  Receive Date: 20150508
  Receipt Date: 20150828
  Transmission Date: 20151125
  Serious: Yes (Life-Threatening)
  Sender: FDA-Public Use
  Company Number: US-009507513-1505USA000429

PATIENT
  Age: 14 Year
  Sex: Female
  Weight: 69.84 kg

DRUGS (1)
  1. DULERA [Suspect]
     Active Substance: FORMOTEROL FUMARATE DIHYDRATE\MOMETASONE FUROATE
     Indication: ASTHMA
     Dosage: 200/5MCG 2 PUFFS ONCE DAILY
     Route: 055
     Dates: start: 20150414, end: 20150430

REACTIONS (3)
  - Pharyngeal oedema [Recovered/Resolved]
  - Gastrointestinal disorder [Recovered/Resolved]
  - Anaphylactic reaction [Recovered/Resolved]

NARRATIVE: CASE EVENT DATE: 20150416
